FAERS Safety Report 13301574 (Version 1)
Quarter: 2017Q1

REPORT INFORMATION
  Report Type: Spontaneous
  Country: US (occurrence: US)
  Receive Date: 20170306
  Receipt Date: 20170306
  Transmission Date: 20170428
  Serious: No
  Sender: FDA-Public Use
  Company Number: None

PATIENT
  Age: 54 Year
  Sex: Male

DRUGS (1)
  1. MYCOPHENOLIC TAB 360MG DR [Suspect]
     Active Substance: MYCOPHENOLIC ACID
     Indication: RENAL TRANSPLANT

REACTIONS (2)
  - Diarrhoea [None]
  - Dizziness [None]

NARRATIVE: CASE EVENT DATE: 20170224
